FAERS Safety Report 26213039 (Version 1)
Quarter: 2025Q4

REPORT INFORMATION
  Report Type: Spontaneous
  Country: US (occurrence: US)
  Receive Date: 20251230
  Receipt Date: 20251230
  Transmission Date: 20260118
  Serious: Yes (Life-Threatening, Hospitalization, Other)
  Sender: MACLEODS
  Company Number: US-MACLEODS PHARMA-MAC2015002042

PATIENT

DRUGS (4)
  1. LINEZOLID [Suspect]
     Active Substance: LINEZOLID
     Indication: Enterococcal infection
     Dosage: 600 MG, BID
     Route: 042
  2. AMPHOTERICIN B [Concomitant]
     Active Substance: AMPHOTERICIN B
     Dosage: 300 MG, QD
     Route: 042
  3. MICAFUNGIN [Concomitant]
     Active Substance: MICAFUNGIN SODIUM
     Dosage: 100 MG, QD
     Route: 042
  4. PIPERACILLIN SODIUM\TAZOBACTAM SODIUM [Concomitant]
     Active Substance: PIPERACILLIN SODIUM\TAZOBACTAM SODIUM
     Dosage: 2.25 G INTRAVENOUS  EVERY 8 HOURS
     Route: 042

REACTIONS (14)
  - Septic pulmonary embolism [Recovered/Resolved]
  - Slow response to stimuli [Recovered/Resolved]
  - Social avoidant behaviour [Recovered/Resolved]
  - Pancreatitis acute [Unknown]
  - Hypoglycaemia [Unknown]
  - Toxicity to various agents [Unknown]
  - Lipase increased [Unknown]
  - Respiratory acidosis [Unknown]
  - Metabolic alkalosis [Unknown]
  - Respiratory failure [Recovered/Resolved]
  - Metabolic acidosis [Unknown]
  - Somnolence [Recovered/Resolved]
  - Abdominal pain upper [Recovered/Resolved]
  - Lactic acidosis [Unknown]
